FAERS Safety Report 24933482 (Version 3)
Quarter: 2025Q4

REPORT INFORMATION
  Report Type: Spontaneous
  Country: US (occurrence: US)
  Receive Date: 20250206
  Receipt Date: 20251002
  Transmission Date: 20260118
  Serious: Yes (Other)
  Sender: SANOFI AVENTIS
  Company Number: US-SA-2025SA033775

PATIENT
  Age: 85 Year
  Sex: Female
  Weight: 42.73 kg

DRUGS (27)
  1. DUPIXENT [Suspect]
     Active Substance: DUPILUMAB
     Indication: Dermatitis atopic
     Dosage: 300 MG, QOW
     Route: 058
     Dates: start: 202401
  2. ADVIL [Concomitant]
     Active Substance: IBUPROFEN
  3. BETAMETHASONE DIPROPIONATE [Concomitant]
     Active Substance: BETAMETHASONE DIPROPIONATE
  4. CLOBETASOL [Concomitant]
     Active Substance: CLOBETASOL
  5. COENZYME Q10 [Concomitant]
     Active Substance: DIETARY SUPPLEMENT\UBIDECARENONE
  6. FISH OIL [Concomitant]
     Active Substance: FISH OIL
  7. KETOCONAZOLE [Concomitant]
     Active Substance: KETOCONAZOLE
  8. VITAMINS [Concomitant]
     Active Substance: VITAMINS
  9. PROLIA [Concomitant]
     Active Substance: DENOSUMAB
  10. TACROLIMUS [Concomitant]
     Active Substance: TACROLIMUS
  11. TRIAMCINOLONE ACETONIDE [Concomitant]
     Active Substance: TRIAMCINOLONE ACETONIDE
  12. TYLENOL [Concomitant]
     Active Substance: ACETAMINOPHEN
  13. VITAMIN C [Concomitant]
     Active Substance: ASCORBIC ACID
  14. VITAMIN D3 [Concomitant]
     Active Substance: CHOLECALCIFEROL
  15. TRAMADOL HCL [Concomitant]
     Active Substance: TRAMADOL HYDROCHLORIDE
  16. ONDANSETRON HYDROCHLORIDE [Concomitant]
     Active Substance: ONDANSETRON HYDROCHLORIDE
  17. PROCHLORPERAZINE MALEATE [Concomitant]
     Active Substance: PROCHLORPERAZINE MALEATE
  18. NALOXONE HCL [Concomitant]
     Active Substance: NALOXONE HYDROCHLORIDE
  19. CARVEDILOL [Concomitant]
     Active Substance: CARVEDILOL
  20. MORPHINE SULFATE [Concomitant]
     Active Substance: MORPHINE SULFATE
  21. DERMA-SMOOTHE/FS [Concomitant]
     Active Substance: FLUOCINOLONE ACETONIDE
  22. ALPRAZOLAM [Concomitant]
     Active Substance: ALPRAZOLAM
  23. OXYCODONE AND ACETAMINOPHEN [Concomitant]
     Active Substance: ACETAMINOPHEN\OXYCODONE HYDROCHLORIDE
  24. IBUPROFEN [Concomitant]
     Active Substance: IBUPROFEN
  25. MELOXICAM [Concomitant]
     Active Substance: MELOXICAM
  26. LIDOCAINE [Concomitant]
     Active Substance: LIDOCAINE
  27. HYDROCHLOROTHIAZIDE [Concomitant]
     Active Substance: HYDROCHLOROTHIAZIDE

REACTIONS (3)
  - Lung neoplasm malignant [Unknown]
  - Rash [Unknown]
  - Rebound atopic dermatitis [Unknown]

NARRATIVE: CASE EVENT DATE: 20250101
